FAERS Safety Report 7260890-4 (Version None)
Quarter: 2011Q1

REPORT INFORMATION
  Report Type: 
  Country: None (occurrence: None)
  Receive Date: 20110130
  Receipt Date: 20101227
  Transmission Date: 20110831
  Serious: No
  Sender: FDA-Public Use
  Company Number: US-ABBOTT-10P-163-0693698-00

PATIENT
  Age: 48 Year
  Sex: Female

DRUGS (9)
  1. LEXAPRO [Concomitant]
     Indication: NERVOUSNESS
  2. NEXIUM [Concomitant]
     Indication: GASTROOESOPHAGEAL REFLUX DISEASE
     Dosage: DAILY
  3. AZOR [Concomitant]
     Indication: HYPERTENSION
     Dosage: 10/40MG DAILY
  4. HYDROCODONE [Concomitant]
     Indication: PAIN
  5. ONDANSETRON [Concomitant]
     Indication: NAUSEA
     Dosage: EVERY 8 HOURS AS NEEDED
  6. HUMIRA [Suspect]
     Indication: RHEUMATOID ARTHRITIS
     Dates: start: 20100801
  7. CELEBREX [Concomitant]
     Indication: RHEUMATOID ARTHRITIS
  8. LEXAPRO [Concomitant]
     Indication: PAIN
  9. CRESTOR [Concomitant]
     Indication: BLOOD CHOLESTEROL INCREASED

REACTIONS (1)
  - NASOPHARYNGITIS [None]
